FAERS Safety Report 9681464 (Version 1)
Quarter: 2013Q4

REPORT INFORMATION
  Report Type: Spontaneous
  Country: AU (occurrence: None)
  Receive Date: 20131107
  Receipt Date: 20131107
  Transmission Date: 20140711
  Serious: Yes (Hospitalization)
  Sender: FDA-Public Use
  Company Number: 1277478

PATIENT
  Age: 57 Year
  Sex: Female

DRUGS (6)
  1. LACTULOSE [Suspect]
     Indication: CONSTIPATION
  2. CHLORPROMAZINE [Suspect]
     Indication: SCHIZOPHRENIA
     Dosage: 25MG-50MG BY MOUTH NIGHTLY
  3. OLANZAPINE [Suspect]
     Indication: SCHIZOPHRENIA
     Route: 048
  4. BENZOTROPINE [Suspect]
     Indication: TREMOR
     Route: 048
  5. ACTILAX [Suspect]
     Indication: CONSTIPATION
  6. MOVICOL [Suspect]
     Indication: CONSTIPATION
     Dosage: 3 SACHETS BY MOUTH EACH DAY

REACTIONS (5)
  - Drug interaction [None]
  - Tremor [None]
  - Extrapyramidal disorder [None]
  - Musculoskeletal stiffness [None]
  - Eye movement disorder [None]
